FAERS Safety Report 19450760 (Version 4)
Quarter: 2021Q3

REPORT INFORMATION
  Report Type: Spontaneous
  Country: GB (occurrence: GB)
  Receive Date: 20210622
  Receipt Date: 20210913
  Transmission Date: 20211014
  Serious: Yes (Hospitalization, Other)
  Sender: FDA-Public Use
  Company Number: NVSC2021GB133461

PATIENT
  Age: 53 Year
  Sex: Male
  Weight: 125.1 kg

DRUGS (44)
  1. GEMCITABINE. [Suspect]
     Active Substance: GEMCITABINE
     Indication: UNDIFFERENTIATED SARCOMA
     Dosage: 2660 MG (DAY 1 AND DAY 8)
     Route: 042
     Dates: start: 20201117, end: 20201124
  2. LOSARTAN POTASSIUM. [Suspect]
     Active Substance: LOSARTAN POTASSIUM
     Dosage: 50 MG, QD
     Route: 048
     Dates: start: 20210308
  3. LAXIDO [Concomitant]
     Active Substance: POLYETHYLENE GLYCOL 3350\POTASSIUM CHLORIDE\SODIUM BICARBONATE\SODIUM CHLORIDE
     Dosage: DOSE: 1 SACHET, BID/PRN
     Route: 048
     Dates: start: 2008, end: 20210728
  4. AZITHROMYCIN ANHYDROUS. [Concomitant]
     Active Substance: AZITHROMYCIN ANHYDROUS
     Indication: PNEUMONIA
     Dosage: UNK
     Route: 042
  5. GEMCITABINE. [Suspect]
     Active Substance: GEMCITABINE
     Dosage: 2128 MG (DAY 1 AND DAY 8)
     Route: 042
     Dates: start: 20201117, end: 20201210
  6. GEMCITABINE. [Suspect]
     Active Substance: GEMCITABINE
     Dosage: 1710 MILLIGRAM, FREQUENCY: D1 AND D8
     Route: 042
     Dates: start: 20210304, end: 20210304
  7. ATORVASTATIN [Concomitant]
     Active Substance: ATORVASTATIN
     Indication: CORONARY ARTERY DISEASE
     Dosage: 80 MILLIGRAM, QD
     Route: 048
     Dates: start: 2017, end: 20210308
  8. GABAPENTIN. [Concomitant]
     Active Substance: GABAPENTIN
     Indication: NEURALGIA
  9. LANOLIN. [Concomitant]
     Active Substance: LANOLIN
     Indication: RASH
     Dosage: UNK, TID
     Route: 061
     Dates: start: 20201123, end: 2021
  10. AMOXICLAV [Concomitant]
     Active Substance: AMOXICILLIN\CLAVULANATE POTASSIUM
     Indication: PRODUCT USED FOR UNKNOWN INDICATION
     Dosage: 7 DAY COURSE
     Route: 048
  11. E45 [Concomitant]
     Active Substance: LANOLIN\LIGHT MINERAL OIL\PARAFFIN
     Indication: RASH
     Dosage: UNK, TID
     Route: 061
     Dates: start: 20201123, end: 2021
  12. DOCUSATE SODIUM. [Concomitant]
     Active Substance: DOCUSATE SODIUM
     Indication: CONSTIPATION
     Dosage: 200 MILLIGRAM, BID
     Route: 048
     Dates: start: 2008, end: 2021
  13. PETROLATUM. [Concomitant]
     Active Substance: PETROLATUM
     Indication: RASH
     Dosage: UNK, TID
     Route: 061
     Dates: start: 20201123, end: 2021
  14. LIDOCAINE. [Concomitant]
     Active Substance: LIDOCAINE
     Indication: PAIN
     Dosage: DOSE: T TOPICAL, TID
     Route: 061
     Dates: start: 20201109, end: 2021
  15. BISOPROLOL [Suspect]
     Active Substance: BISOPROLOL
     Dosage: 7.5 MG, QD
     Route: 048
     Dates: start: 20210308
  16. FUROSEMIDE. [Suspect]
     Active Substance: FUROSEMIDE
     Indication: CORONARY ARTERY DISEASE
     Dosage: 20 MILLIGRAM, QD
     Route: 048
     Dates: start: 20201125
  17. FUROSEMIDE. [Suspect]
     Active Substance: FUROSEMIDE
     Dosage: 20 MG, QD
     Route: 048
     Dates: start: 20210308
  18. GEMCITABINE. [Suspect]
     Active Substance: GEMCITABINE
     Indication: LEIOMYOSARCOMA
     Dosage: 2128 MG, FREQUENCY: D1 AND D8
     Route: 042
     Dates: start: 20201117
  19. OXYCONTIN [Suspect]
     Active Substance: OXYCODONE HYDROCHLORIDE
     Indication: PAIN
     Dosage: 40 MILLIGRAM, ONCE
     Route: 048
     Dates: start: 20210224
  20. PEMBROLIZUMAB. [Suspect]
     Active Substance: PEMBROLIZUMAB
     Indication: PLEOMORPHIC LEIOMYOSARCOMA
     Dosage: 200 MG, QW
     Route: 042
     Dates: start: 20201117, end: 20210304
  21. PEMBROLIZUMAB. [Suspect]
     Active Substance: PEMBROLIZUMAB
     Indication: UNDIFFERENTIATED SARCOMA
     Dosage: 200 MG, FREQUENCY: D1
     Route: 042
     Dates: start: 20201210
  22. TAZOCIN [Concomitant]
     Active Substance: PIPERACILLIN SODIUM\TAZOBACTAM SODIUM
     Indication: PYREXIA
     Dosage: 4.5 G, Q6H
     Route: 042
  23. GEMCITABINE. [Suspect]
     Active Substance: GEMCITABINE
     Dosage: 2128 MG, FREQUENCY: D1 AND D8
     Route: 042
     Dates: start: 20201210
  24. LOSARTAN POTASSIUM. [Suspect]
     Active Substance: LOSARTAN POTASSIUM
     Dosage: 50 MG, QD
     Route: 065
     Dates: start: 20201206, end: 20210308
  25. GABAPENTIN. [Concomitant]
     Active Substance: GABAPENTIN
     Indication: NEURALGIA
     Dosage: 300 MG MANE, 600 MG NOCTE
     Route: 048
     Dates: start: 20201125, end: 20201127
  26. CLARITHROMYCIN. [Concomitant]
     Active Substance: CLARITHROMYCIN
     Indication: PNEUMONIA
     Dosage: 500 MG, BID
     Route: 042
  27. OXYCONTIN [Suspect]
     Active Substance: OXYCODONE HYDROCHLORIDE
     Dosage: 30 MILLIGRAM, ONCE
     Route: 065
     Dates: start: 20201105
  28. PEMBROLIZUMAB. [Suspect]
     Active Substance: PEMBROLIZUMAB
     Indication: LEIOMYOSARCOMA
     Dosage: 200 MG, FREQUENCY: D1
     Route: 042
     Dates: start: 20210304
  29. PEMBROLIZUMAB. [Suspect]
     Active Substance: PEMBROLIZUMAB
     Dosage: 200 MG, Q3W
     Route: 042
     Dates: start: 20210708, end: 20210708
  30. LANSOPRAZOLE. [Concomitant]
     Active Substance: LANSOPRAZOLE
     Indication: GASTROOESOPHAGEAL REFLUX DISEASE
     Dosage: 30 MILLIGRAM, QD
     Route: 048
     Dates: start: 2017, end: 20210308
  31. LAXIDO [Concomitant]
     Active Substance: POLYETHYLENE GLYCOL 3350\POTASSIUM CHLORIDE\SODIUM BICARBONATE\SODIUM CHLORIDE
     Indication: CONSTIPATION
     Dosage: DOSE: 1 SACHET, BID
     Route: 048
     Dates: start: 2008, end: 2021
  32. CO?AMOXICILLIN [Concomitant]
     Active Substance: AMOXICILLIN\CLAVULANATE POTASSIUM
     Indication: PNEUMONIA
     Dosage: 2 G, BID
     Route: 042
  33. OXYCODONE [Suspect]
     Active Substance: OXYCODONE
     Indication: PELVIC PAIN
     Dosage: 5 MG,PRN
     Route: 048
     Dates: start: 20201105
  34. OXYCODONE [Suspect]
     Active Substance: OXYCODONE
     Dosage: 400 MG, QD
     Route: 048
     Dates: start: 20201105
  35. LOSARTAN POTASSIUM. [Suspect]
     Active Substance: LOSARTAN POTASSIUM
     Indication: HYPERTENSION
     Dosage: 50 MG, QD
     Route: 048
     Dates: start: 20201206
  36. ACETAMINOPHEN. [Concomitant]
     Active Substance: ACETAMINOPHEN
     Dosage: 1 GRAM, QD/PRN
     Route: 048
     Dates: start: 2008, end: 20210728
  37. BISOPROLOL [Suspect]
     Active Substance: BISOPROLOL
     Indication: CORONARY ARTERY DISEASE
     Dosage: 7.5 MG, QD
     Route: 048
     Dates: start: 2017
  38. METOCLOPRAMIDE. [Suspect]
     Active Substance: METOCLOPRAMIDE
     Indication: NAUSEA
     Dosage: 10 MILLIGRAM, QD
     Route: 048
     Dates: start: 20201206, end: 2021
  39. OXYCONTIN [Suspect]
     Active Substance: OXYCODONE HYDROCHLORIDE
     Dosage: 30 MG, QD
     Route: 048
     Dates: start: 20210224
  40. ACETAMINOPHEN. [Concomitant]
     Active Substance: ACETAMINOPHEN
     Indication: PELVIC PAIN
     Dosage: 1 G, QD (PRN)
     Route: 048
     Dates: start: 2008, end: 2021
  41. ASPIRIN. [Concomitant]
     Active Substance: ASPIRIN
     Indication: PROPHYLAXIS
     Dosage: 75 MILLIGRAM, QD
     Route: 048
     Dates: start: 2017, end: 20210308
  42. CLOTRIMAZOLE. [Concomitant]
     Active Substance: CLOTRIMAZOLE
     Indication: INTERTRIGO
     Dosage: DOSE: T, BID
     Route: 061
     Dates: start: 20201123, end: 20201127
  43. MINERAL OIL. [Concomitant]
     Active Substance: MINERAL OIL
     Indication: RASH
     Dosage: UNK, TID
     Route: 061
     Dates: start: 20201123, end: 2021
  44. SENOKOT [Concomitant]
     Active Substance: SENNOSIDES
     Indication: CONSTIPATION
     Dosage: 7.5 MILLIGRAM (ALSO REPORTED AS 2 TABLETS), QD
     Route: 048
     Dates: start: 20200223, end: 20210308

REACTIONS (10)
  - Dizziness [Unknown]
  - Pneumonia [Recovered/Resolved]
  - Blood bilirubin increased [Not Recovered/Not Resolved]
  - Skin infection [Recovered/Resolved]
  - Dyspnoea [Not Recovered/Not Resolved]
  - Cellulitis [Recovered/Resolved]
  - Fall [Recovered/Resolved]
  - Urinary retention [Unknown]
  - Cardiac failure [Recovered/Resolved]
  - Accident [Unknown]

NARRATIVE: CASE EVENT DATE: 20201128
